FAERS Safety Report 11057284 (Version 2)
Quarter: 2015Q2

REPORT INFORMATION
  Report Type: Spontaneous
  Country: US (occurrence: US)
  Receive Date: 20150422
  Receipt Date: 20150611
  Transmission Date: 20150821
  Serious: Yes (Other)
  Sender: FDA-Public Use
  Company Number: US-TEVA-557544USA

PATIENT
  Age: 38 Year
  Sex: Female
  Weight: 57.2 kg

DRUGS (1)
  1. PARAGARD T 380A [Suspect]
     Active Substance: COPPER
     Indication: CONTRACEPTION
     Route: 015
     Dates: start: 20090224

REACTIONS (2)
  - Device dislocation [Recovered/Resolved with Sequelae]
  - Pelvic pain [Recovered/Resolved with Sequelae]

NARRATIVE: CASE EVENT DATE: 20150407
